FAERS Safety Report 7579794-2 (Version None)
Quarter: 2011Q2

REPORT INFORMATION
  Report Type: 
  Country: None (occurrence: None)
  Receive Date: 20110525
  Receipt Date: 20110224
  Transmission Date: 20111010
  Serious: No
  Sender: FDA-Public Use
  Company Number: 324528

PATIENT
  Age: 63 Year
  Sex: Male

DRUGS (4)
  1. VICTOZA [Suspect]
     Indication: TYPE 2 DIABETES MELLITUS
     Dosage: 0.6 MG, QD, SUBCUTANEOUS, 1.2, QD, SUBCUTANEOUS
     Route: 058
  2. VICTOZA [Suspect]
     Indication: WEIGHT INCREASED
     Dosage: 0.6 MG, QD, SUBCUTANEOUS, 1.2, QD, SUBCUTANEOUS
     Route: 058
  3. AMARYL [Concomitant]
  4. METFORMIN HCL [Concomitant]

REACTIONS (2)
  - BLOOD GLUCOSE INCREASED [None]
  - BLOOD GLUCOSE DECREASED [None]
